FAERS Safety Report 8384471-4 (Version None)
Quarter: 2012Q2

REPORT INFORMATION
  Report Type: 
  Country: None (occurrence: None)
  Receive Date: 20120524
  Receipt Date: 20120516
  Transmission Date: 20120825
  Serious: Yes (Hospitalization)
  Sender: FDA-Public Use
  Company Number: DE-GLAXOSMITHKLINE-D0075390A

PATIENT
  Sex: Female
  Weight: 87 kg

DRUGS (4)
  1. ARIXTRA [Suspect]
     Indication: THROMBOSIS PROPHYLAXIS
     Dosage: .5ML PER DAY
     Route: 058
     Dates: start: 20120404, end: 20120405
  2. PANTOPRAZOLE [Concomitant]
     Dosage: 40MG PER DAY
     Route: 048
  3. VOLTAREN [Concomitant]
     Route: 065
  4. METFORMIN HCL [Concomitant]
     Dosage: 1000MG TWICE PER DAY
     Route: 048

REACTIONS (3)
  - VOMITING [None]
  - NAUSEA [None]
  - PRODUCT QUALITY ISSUE [None]
